FAERS Safety Report 18152367 (Version 1)
Quarter: 2020Q3

REPORT INFORMATION
  Report Type: Spontaneous
  Country: SI (occurrence: SI)
  Receive Date: 20200814
  Receipt Date: 20200814
  Transmission Date: 20201103
  Serious: Yes (Hospitalization)
  Sender: FDA-Public Use
  Company Number: SI-MYLANLABS-2020M1071703

PATIENT
  Age: 18 Year
  Sex: Female
  Weight: 62 kg

DRUGS (18)
  1. SODIUM BENZOATE [Concomitant]
     Active Substance: SODIUM BENZOATE
     Indication: HYPERGLYCINAEMIA
     Dosage: UNK
     Route: 065
  2. GLUCOSE [Concomitant]
     Active Substance: DEXTROSE
     Indication: PROPHYLAXIS
     Dosage: 120 MILLILITER, QH
     Route: 042
  3. SEVOFLURANE. [Concomitant]
     Active Substance: SEVOFLURANE
     Indication: ANAESTHESIA
     Dosage: 77.32 MILLILITER AT INDUCTION AND MAINTENANCE
     Route: 065
  4. SUGAMMADEX [Concomitant]
     Active Substance: SUGAMMADEX
     Indication: ANAESTHESIA
     Dosage: 100 MILLIGRAM
     Route: 065
  5. LEVOTHYROXINE. [Concomitant]
     Active Substance: LEVOTHYROXINE
     Indication: HYPOTHYROIDISM
     Dosage: UNK
     Route: 065
  6. ROCURONIUM [Suspect]
     Active Substance: ROCURONIUM BROMIDE
     Indication: MUSCLE RELAXANT THERAPY
     Dosage: 30 MILLIGRAM INDUCTION DOSE
     Route: 065
  7. METRONIDAZOLE. [Concomitant]
     Active Substance: METRONIDAZOLE
     Indication: ANTIBIOTIC THERAPY
     Dosage: FOR 2 WEEKS WITH 3 WEEKS OFF
     Route: 065
  8. SODIUM VALPROATE [Interacting]
     Active Substance: VALPROATE SODIUM
     Indication: EPILEPSY
     Dosage: UNK
     Route: 065
  9. GLUCOSE [Concomitant]
     Active Substance: DEXTROSE
     Dosage: 170 MILLILITER, QH DURING OPERATION
     Route: 042
  10. MIDAZOLAM. [Concomitant]
     Active Substance: MIDAZOLAM
     Indication: ANAESTHESIA
     Dosage: 2 MILLIGRAM BEFORE INDUCTION
     Route: 065
  11. PROPOFOL. [Concomitant]
     Active Substance: PROPOFOL
     Indication: ANAESTHESIA
     Dosage: 100 MILLIGRAM INDUCTION DOSE
     Route: 065
  12. L?CARNITINE                        /00878601/ [Concomitant]
     Active Substance: LEVOCARNITINE
     Indication: HYPERGLYCINAEMIA
     Dosage: UNK
     Route: 065
  13. SUFENTANIL [Concomitant]
     Active Substance: SUFENTANIL
     Dosage: 40 MICROGRAM ALL TOGETHER
     Route: 065
  14. INSULIN [Concomitant]
     Active Substance: INSULIN NOS
     Indication: PROPHYLAXIS
     Dosage: 0.01 E/KG/H AND ADJUSTED FURTHER DURING OPERATION
  15. SUFENTANIL [Concomitant]
     Active Substance: SUFENTANIL
     Indication: ANAESTHESIA
     Dosage: 5 MICROGRAM AT INDUCTION
     Route: 065
  16. ROCURONIUM [Interacting]
     Active Substance: ROCURONIUM BROMIDE
     Indication: INDUCTION AND MAINTENANCE OF ANAESTHESIA
     Dosage: 40 MILLIGRAM MAINTENANCE DOSE (TOTAL DOSE: 70MG)
     Route: 065
  17. PANTOPRAZOLE [Concomitant]
     Active Substance: PANTOPRAZOLE
     Indication: PRODUCT USED FOR UNKNOWN INDICATION
     Dosage: UNK
     Route: 065
  18. COENZYME Q10 [Concomitant]
     Active Substance: DIETARY SUPPLEMENT\UBIDECARENONE
     Indication: PRODUCT USED FOR UNKNOWN INDICATION
     Dosage: UNK
     Route: 065

REACTIONS (2)
  - Drug interaction [Unknown]
  - Drug ineffective [Unknown]
